FAERS Safety Report 10285432 (Version 2)
Quarter: 2014Q3

REPORT INFORMATION
  Report Type: Spontaneous
  Country: IE (occurrence: IE)
  Receive Date: 20140709
  Receipt Date: 20140730
  Transmission Date: 20150326
  Serious: Yes (Death)
  Sender: FDA-Public Use
  Company Number: IE-AMGEN INC.-IRLSP2014050919

PATIENT
  Age: 68 Year
  Sex: Male

DRUGS (1)
  1. NEULASTA [Suspect]
     Active Substance: PEGFILGRASTIM
     Indication: SQUAMOUS CELL CARCINOMA OF PHARYNX
     Dosage: 6MG/0.6 MLS, POST CHEMO EVERY THREE WEEKS
     Route: 058
     Dates: start: 20120612

REACTIONS (1)
  - Metastatic neoplasm [Fatal]
